FAERS Safety Report 10995905 (Version 2)
Quarter: 2015Q2

REPORT INFORMATION
  Report Type: Report from Study
  Country: US (occurrence: US)
  Receive Date: 20150407
  Receipt Date: 20150424
  Transmission Date: 20150821
  Serious: Yes (Other)
  Sender: FDA-Public Use
  Company Number: US-ACTELION-A-NJ2015-115750

PATIENT
  Age: 72 Year
  Sex: Male

DRUGS (2)
  1. TRACLEER [Suspect]
     Active Substance: BOSENTAN\BOSENTAN MONOHYDRATE
     Indication: PULMONARY ARTERIAL HYPERTENSION
     Dosage: UNK
     Route: 048
  2. TREPROSTINIL [Concomitant]
     Active Substance: TREPROSTINIL

REACTIONS (4)
  - Pain in extremity [Unknown]
  - Decreased appetite [Unknown]
  - Weight decreased [Unknown]
  - Chemotherapy [Unknown]
